FAERS Safety Report 9458541 (Version 3)
Quarter: 2014Q1

REPORT INFORMATION
  Report Type: Report from Study
  Country: JP (occurrence: JP)
  Receive Date: 20130814
  Receipt Date: 20140322
  Transmission Date: 20141002
  Serious: Yes (Hospitalization, Other)
  Sender: FDA-Public Use
  Company Number: JP-ROCHE-1258711

PATIENT
  Age: 73 Year
  Sex: Female
  Weight: 59 kg

DRUGS (2)
  1. METHOXY POLYETHYLENE GLYCOL-EPOETIN BETA [Suspect]
     Indication: NEPHROGENIC ANAEMIA
     Route: 042
     Dates: start: 20111125
  2. FESIN (JAPAN) [Concomitant]
     Indication: PROPHYLAXIS
     Dosage: FIVE WEEK ONCE A WEEK
     Route: 042
     Dates: start: 20120120, end: 20120217

REACTIONS (2)
  - Haemorrhagic anaemia [Recovered/Resolved]
  - Diverticulum intestinal haemorrhagic [Unknown]
